FAERS Safety Report 8811402 (Version 2)
Quarter: 2012Q4

REPORT INFORMATION
  Report Type: 
  Country: NZ (occurrence: NZ)
  Receive Date: 20120927
  Receipt Date: 20121108
  Transmission Date: 20130627
  Serious: Yes (Disabling)
  Sender: FDA-Public Use
  Company Number: NZ-PFIZER INC-2012239343

PATIENT
  Age: 80 Year
  Sex: Female

DRUGS (5)
  1. ZARATOR [Suspect]
     Indication: HYPERLIPIDAEMIA
     Dosage: 20 mg, UNK
     Route: 048
     Dates: start: 20120912, end: 20120913
  2. ZARATOR [Suspect]
     Dosage: 20 mg, UNK
     Route: 048
     Dates: start: 20120919, end: 20120921
  3. PARACETAMOL [Concomitant]
     Dosage: 1000 mg, 4x/day
     Route: 048
  4. OMEPRAZOLE [Concomitant]
     Dosage: 20 mg, 1x/day
     Route: 048
  5. NAPROXEN [Concomitant]
     Dosage: 500 mg, 1x/day
     Route: 048

REACTIONS (5)
  - Palpitations [Recovered/Resolved]
  - Nervousness [Recovered/Resolved]
  - Feeling of body temperature change [Recovered/Resolved]
  - Burning sensation [Recovered/Resolved]
  - Oral discomfort [Recovered/Resolved]
